FAERS Safety Report 18174055 (Version 1)
Quarter: 2020Q3

REPORT INFORMATION
  Report Type: Spontaneous
  Country: GB (occurrence: GB)
  Receive Date: 20200820
  Receipt Date: 20200820
  Transmission Date: 20201105
  Serious: Yes (Hospitalization, Other)
  Sender: FDA-Public Use
  Company Number: GB-AXELLIA-003307

PATIENT
  Age: 78 Year
  Sex: Female

DRUGS (4)
  1. COLISTIN [Suspect]
     Active Substance: COLISTIN
     Indication: PSEUDOMONAS INFECTION
     Dosage: 9 (MU) LOADING DOSE?FOLLOWED BY 3 MU 3 TIMES PER DAY
  2. CEFIDEROCOL. [Suspect]
     Active Substance: CEFIDEROCOL
     Indication: PSEUDOMONAS INFECTION
     Dosage: DOSE OF 2 G ADMINISTERED?OVER 3 HOURS 3 TIMES A DAY FOR THE FIRST 2 DAYS
  3. GENTAMICIN. [Concomitant]
     Active Substance: GENTAMICIN
     Indication: PSEUDOMONAS INFECTION
     Dosage: STOPPED AFTER THE THIRD DOSE ON DAY 5
  4. MEROPENEM. [Concomitant]
     Active Substance: MEROPENEM
     Dosage: 2G 2 TIMES PER DAY

REACTIONS (1)
  - Neutropenia [Recovered/Resolved]
